FAERS Safety Report 20198363 (Version 1)
Quarter: 2021Q4

REPORT INFORMATION
  Report Type: Spontaneous
  Country: US (occurrence: US)
  Receive Date: 20211217
  Receipt Date: 20211217
  Transmission Date: 20220303
  Serious: Yes (Other)
  Sender: FDA-Public Use
  Company Number: US-JNJFOC-20211222466

PATIENT
  Age: 91 Year
  Sex: Male
  Weight: 72.186 kg

DRUGS (4)
  1. XARELTO [Suspect]
     Active Substance: RIVAROXABAN
     Indication: Atrial fibrillation
     Route: 048
     Dates: start: 20211007
  2. XARELTO [Suspect]
     Active Substance: RIVAROXABAN
     Indication: Cerebrovascular accident prophylaxis
  3. XARELTO [Suspect]
     Active Substance: RIVAROXABAN
     Indication: Arrhythmia
  4. LOSARTAN [Concomitant]
     Active Substance: LOSARTAN
     Indication: Atrial fibrillation
     Route: 048

REACTIONS (9)
  - Arrhythmia [Unknown]
  - Ventricular extrasystoles [Unknown]
  - Productive cough [Unknown]
  - Asthenia [Unknown]
  - Paraesthesia [Unknown]
  - Pain in extremity [Unknown]
  - Insomnia [Unknown]
  - Memory impairment [Unknown]
  - Hypoaesthesia [Unknown]

NARRATIVE: CASE EVENT DATE: 20210101
